FAERS Safety Report 8728700 (Version 2)
Quarter: 2013Q1

REPORT INFORMATION
  Report Type: Spontaneous
  Country: BR (occurrence: BR)
  Receive Date: 20120817
  Receipt Date: 20130129
  Transmission Date: 20140127
  Serious: Yes (Hospitalization, Other)
  Sender: FDA-Public Use
  Company Number: PHHY2012BR070718

PATIENT
  Sex: Male

DRUGS (6)
  1. EXELON PATCH [Suspect]
     Indication: PARKINSON^S DISEASE
     Dosage: 4.6 MG (9 MG/5 CM), ONE PATCH DAILY
     Route: 062
  2. EXELON PATCH [Suspect]
     Dosage: 9.5 MG (18 MG/10 CM), DAILY
     Route: 062
  3. MICARDIS [Concomitant]
     Dosage: 1 DF, QD
     Route: 048
  4. VASOGARD [Concomitant]
     Dosage: 1 DF, QD
     Route: 048
  5. SELOZOK [Concomitant]
     Dosage: 1 DF, QD
     Route: 048
  6. SINVASTIN [Concomitant]
     Indication: BLOOD PRESSURE INCREASED
     Dosage: 1 DF, QD
     Route: 048

REACTIONS (6)
  - Pneumonia [Recovered/Resolved]
  - Rash pruritic [Recovered/Resolved]
  - Swelling [Recovered/Resolved]
  - Influenza [Recovered/Resolved]
  - Bradyphrenia [Recovered/Resolved]
  - Mental impairment [Recovered/Resolved]
